FAERS Safety Report 23956370 (Version 1)
Quarter: 2024Q2

REPORT INFORMATION
  Report Type: Spontaneous
  Country: JP (occurrence: JP)
  Receive Date: 20240610
  Receipt Date: 20240610
  Transmission Date: 20240716
  Serious: Yes (Hospitalization)
  Sender: FDA-Public Use
  Company Number: JP-VANTIVE-2024VAN017389

PATIENT
  Sex: Male

DRUGS (1)
  1. REGUNEAL LCA [Suspect]
     Active Substance: CALCIUM CHLORIDE\DEXTROSE MONOHYDRATE\HYDROCHLORIC ACID\MAGNESIUM CHLORIDE\SODIUM BICARBONATE\SODIUM
     Indication: Chronic kidney disease
     Dosage: 5000ML
     Route: 033

REACTIONS (3)
  - Device dislocation [Not Recovered/Not Resolved]
  - Peritoneal dialysis complication [Unknown]
  - Procedural pain [Unknown]

NARRATIVE: CASE EVENT DATE: 20240530
